FAERS Safety Report 6602425-2 (Version None)
Quarter: 2010Q1

REPORT INFORMATION
  Report Type: 
  Country: None (occurrence: None)
  Receive Date: 20100225
  Receipt Date: 20100218
  Transmission Date: 20100710
  Serious: Yes (Hospitalization)
  Sender: FDA-Public Use
  Company Number: PHHO2009DE13593

PATIENT
  Sex: Male
  Weight: 79 kg

DRUGS (1)
  1. CERTICAN [Suspect]
     Indication: HEART TRANSPLANT
     Dosage: 1 MG, BID
     Route: 048
     Dates: start: 20091012

REACTIONS (5)
  - CONCOMITANT DISEASE PROGRESSION [None]
  - IMPAIRED HEALING [None]
  - LYMPHATIC FISTULA [None]
  - SURGERY [None]
  - WOUND [None]
